FAERS Safety Report 6495677-3 (Version None)
Quarter: 2009Q4

REPORT INFORMATION
  Report Type: 
  Country: None (occurrence: None)
  Receive Date: 20091214
  Receipt Date: 20090730
  Transmission Date: 20100525
  Serious: No
  Sender: FDA-Public Use
  Company Number: US-BRISTOL-MYERS SQUIBB COMPANY-14723118

PATIENT
  Sex: Male

DRUGS (1)
  1. ABILIFY [Suspect]
     Indication: AFFECTIVE DISORDER

REACTIONS (8)
  - ARTHRALGIA [None]
  - BLOOD PRESSURE INCREASED [None]
  - FLATULENCE [None]
  - HYPOAESTHESIA [None]
  - HYPOHIDROSIS [None]
  - JOINT STIFFNESS [None]
  - SLUGGISHNESS [None]
  - WEIGHT INCREASED [None]
